FAERS Safety Report 6315193-9 (Version None)
Quarter: 2009Q3

REPORT INFORMATION
  Report Type: 
  Country: None (occurrence: None)
  Receive Date: 20090819
  Receipt Date: 20090814
  Transmission Date: 20100115
  Serious: Yes (Death, Hospitalization)
  Sender: FDA-Public Use
  Company Number: BE-MERCK-0908BEL00006

PATIENT
  Age: 56 Year
  Sex: Male
  Weight: 87 kg

DRUGS (4)
  1. CANCIDAS [Suspect]
     Indication: ASPERGILLOSIS
     Route: 041
     Dates: start: 20090113, end: 20090113
  2. CANCIDAS [Suspect]
     Route: 041
     Dates: start: 20090114, end: 20090115
  3. FLUCONAZOLE [Concomitant]
     Indication: ASPERGILLOSIS
     Route: 048
     Dates: start: 20090105, end: 20090113
  4. CORTICOSTEROIDS (UNSPECIFIED) [Concomitant]
     Route: 065

REACTIONS (2)
  - BACTERIAL INFECTION [None]
  - ORGAN FAILURE [None]
